FAERS Safety Report 5849684-1 (Version None)
Quarter: 2008Q3

REPORT INFORMATION
  Report Type: 
  Country: None (occurrence: None)
  Receive Date: 20080818
  Receipt Date: 20080818
  Transmission Date: 20090109
  Serious: Yes (Hospitalization, Other)
  Sender: FDA-Public Use
  Company Number: None

PATIENT
  Age: 37 Year
  Sex: Female
  Weight: 62.5964 kg

DRUGS (2)
  1. LEVAQUIN [Suspect]
     Indication: INFECTION PROPHYLAXIS
     Dosage: 500 MG ONCE DAILY PO
     Route: 048
     Dates: start: 20080713, end: 20080717
  2. LEVAQUIN [Suspect]
     Indication: SURGERY
     Dosage: 500 MG ONCE DAILY PO
     Route: 048
     Dates: start: 20080713, end: 20080717

REACTIONS (13)
  - ABDOMINAL PAIN UPPER [None]
  - ANOREXIA [None]
  - DEPRESSED LEVEL OF CONSCIOUSNESS [None]
  - DIARRHOEA [None]
  - HEART RATE IRREGULAR [None]
  - HYPOAESTHESIA [None]
  - HYPOGLYCAEMIA [None]
  - INSOMNIA [None]
  - NAUSEA [None]
  - PARAESTHESIA [None]
  - SYNCOPE [None]
  - TREMOR [None]
  - VOMITING [None]
